FAERS Safety Report 6842140-3 (Version None)
Quarter: 2010Q3

REPORT INFORMATION
  Report Type: 
  Country: None (occurrence: None)
  Receive Date: 20100714
  Receipt Date: 20070720
  Transmission Date: 20110219
  Serious: No
  Sender: FDA-Public Use
  Company Number: US-PFIZER INC-2007061693

PATIENT
  Sex: Female
  Weight: 68 kg

DRUGS (3)
  1. CHANTIX [Suspect]
     Indication: SMOKING CESSATION THERAPY
     Route: 048
     Dates: start: 20070707, end: 20070717
  2. FISH OIL [Concomitant]
  3. VITAMIN B-12 [Concomitant]
     Indication: MIGRAINE

REACTIONS (3)
  - LETHARGY [None]
  - MIGRAINE [None]
  - NAUSEA [None]
